FAERS Safety Report 6461946-6 (Version None)
Quarter: 2009Q4

REPORT INFORMATION
  Report Type: 
  Country: None (occurrence: None)
  Receive Date: 20091130
  Receipt Date: 20091116
  Transmission Date: 20100525
  Serious: Yes (Hospitalization)
  Sender: FDA-Public Use
  Company Number: US-ROCHE-603891

PATIENT
  Sex: Male

DRUGS (9)
  1. PEG-INTERFERON ALFA 2A (RO 25-8310) [Suspect]
     Indication: HEPATITIS C
     Route: 058
     Dates: start: 20080715
  2. RIBAVIRIN [Suspect]
     Indication: HEPATITIS C
     Dosage: 600 MG EVERY AM AND 600 MG EVERY PM
     Route: 048
     Dates: start: 20080715
  3. VX-950 [Suspect]
     Indication: HEPATITIS C
     Route: 048
     Dates: start: 20080715, end: 20080726
  4. AMOXICILLIN [Concomitant]
     Indication: DENTAL DISORDER PROPHYLAXIS
     Route: 048
     Dates: start: 20081125, end: 20081203
  5. CLOBETASOL PROPIONATE [Concomitant]
     Indication: RASH
     Dosage: DRUG : CLOBETASOL PROPIONATE 0.05%.
     Route: 061
     Dates: start: 20081003
  6. MILK THISTLE [Concomitant]
     Indication: LIVER DISORDER
     Route: 048
     Dates: start: 19980101
  7. PEPTO BISMOL [Concomitant]
     Route: 048
     Dates: start: 20080717
  8. PRILOSEC [Concomitant]
     Route: 048
     Dates: start: 20080601
  9. ATARAX [Concomitant]
     Indication: RASH
     Route: 048
     Dates: start: 20081022

REACTIONS (1)
  - SYNCOPE [None]
